FAERS Safety Report 15122207 (Version 1)
Quarter: 2018Q3

REPORT INFORMATION
  Report Type: Report from Study
  Country: None (occurrence: US)
  Receive Date: 20180709
  Receipt Date: 20180709
  Transmission Date: 20181010
  Serious: Yes (Other)
  Sender: FDA-Public Use
  Company Number: US-ABBVIE-18S-163-2408363-00

PATIENT
  Sex: Male

DRUGS (1)
  1. CREON [Suspect]
     Active Substance: PANCRELIPASE AMYLASE\PANCRELIPASE LIPASE\PANCRELIPASE PROTEASE
     Indication: PRODUCT USED FOR UNKNOWN INDICATION
     Route: 048

REACTIONS (7)
  - Pancreatic carcinoma [Unknown]
  - Cardiac neoplasm malignant [Unknown]
  - Malignant nervous system neoplasm [Unknown]
  - Malignant mediastinal neoplasm [Unknown]
  - Ear neoplasm malignant [Unknown]
  - Bladder cancer [Unknown]
  - Atrial fibrillation [Unknown]
